FAERS Safety Report 19234556 (Version 1)
Quarter: 2021Q2

REPORT INFORMATION
  Report Type: Spontaneous
  Country: US (occurrence: US)
  Receive Date: 20210508
  Receipt Date: 20210508
  Transmission Date: 20210717
  Serious: Yes (Other)
  Sender: FDA-Public Use
  Company Number: US-ENDO PHARMACEUTICALS INC-2021-002385

PATIENT
  Age: 60 Year
  Sex: Female

DRUGS (8)
  1. RANITIDINE HYDROCHLORIDE. [Suspect]
     Active Substance: RANITIDINE HYDROCHLORIDE
     Indication: ABDOMINAL DISCOMFORT
     Dosage: DAILY MARCH THROUGH OCTOBER (ALLERGY SEASON)
     Route: 065
     Dates: start: 201010, end: 201709
  2. ZANTAC [Suspect]
     Active Substance: RANITIDINE HYDROCHLORIDE
     Indication: URTICARIA
  3. RANITIDINE HYDROCHLORIDE. [Suspect]
     Active Substance: RANITIDINE HYDROCHLORIDE
     Indication: URTICARIA
  4. RANITIDINE. [Suspect]
     Active Substance: RANITIDINE
     Indication: ABDOMINAL DISCOMFORT
     Dosage: DAILY MARCH THROUGH OCTOBER (ALLERGY SEASON)
     Route: 065
     Dates: start: 201010, end: 201709
  5. RANITIDINE. [Suspect]
     Active Substance: RANITIDINE
     Indication: URTICARIA
  6. ZANTAC [Suspect]
     Active Substance: RANITIDINE HYDROCHLORIDE
     Indication: URTICARIA
  7. ZANTAC [Suspect]
     Active Substance: RANITIDINE HYDROCHLORIDE
     Indication: ABDOMINAL DISCOMFORT
     Dosage: DAILY MARCH THROUGH OCTOBER (ALLERGY SEASON)
     Route: 065
     Dates: start: 201010, end: 201709
  8. ZANTAC [Suspect]
     Active Substance: RANITIDINE HYDROCHLORIDE
     Indication: ABDOMINAL DISCOMFORT
     Dosage: DAILY MARCH THROUGH OCTOBER (ALLERGY SEASON)
     Route: 065
     Dates: start: 201010, end: 201709

REACTIONS (2)
  - Renal cancer stage III [Recovered/Resolved]
  - Aortic aneurysm [Unknown]

NARRATIVE: CASE EVENT DATE: 20180901
